FAERS Safety Report 26137029 (Version 1)
Quarter: 2025Q4

REPORT INFORMATION
  Report Type: Spontaneous
  Country: US (occurrence: None)
  Receive Date: 20251205
  Receipt Date: 20251205
  Transmission Date: 20260117
  Serious: Yes (Other)
  Sender: FDA-CTU
  Company Number: None

PATIENT
  Age: 4 Year
  Sex: Male
  Weight: 18 kg

DRUGS (1)
  1. VALTROVER [Suspect]
     Active Substance: MONTELUKAST
     Indication: Cough
     Dosage: 1 LACJET DAUKT IRAK ?
     Route: 048
     Dates: start: 20251201, end: 20251205

REACTIONS (2)
  - Ear pain [None]
  - Intentional dose omission [None]

NARRATIVE: CASE EVENT DATE: 20251205
